FAERS Safety Report 11656098 (Version 4)
Quarter: 2016Q1

REPORT INFORMATION
  Report Type: Spontaneous
  Country: US (occurrence: US)
  Receive Date: 20151023
  Receipt Date: 20160309
  Transmission Date: 20160525
  Serious: Yes (Death, Hospitalization, Other)
  Sender: FDA-Public Use
  Company Number: US-PFIZER INC-2015354170

PATIENT
  Age: 78 Year
  Sex: Male
  Weight: 75 kg

DRUGS (12)
  1. OXYGEN. [Concomitant]
     Active Substance: OXYGEN
     Dosage: 24/7-6
  2. KLOR-CON [Concomitant]
     Active Substance: POTASSIUM CHLORIDE
     Dosage: 10 MEQ, 1-2X DAILY
  3. INSULIN [Concomitant]
     Active Substance: INSULIN NOS
     Dosage: 30 UNITS IN THE MORNING 24 UNITS IN THE EVENING
  4. ASPIRIN. [Concomitant]
     Active Substance: ASPIRIN
     Dosage: 81 MG, DAILY (1 DAILY)
  5. FUROSEMIDE. [Concomitant]
     Active Substance: FUROSEMIDE
     Dosage: 2 TABLETS TUESDAY-THURSDAY-STATUARY, 1 TABLET MONDAY-WEDNESDAY-FRIDAY-SUNDAY
  6. PANTOPRAZOLE [Concomitant]
     Active Substance: PANTOPRAZOLE SODIUM
     Dosage: 40 MG, 1-2 DAILY
  7. METOLAZONE. [Concomitant]
     Active Substance: METOLAZONE
     Dosage: 5 MG, DAILY
  8. CRESTOR [Concomitant]
     Active Substance: ROSUVASTATIN CALCIUM
     Dosage: 20 MG, DAILY
  9. DIGOXIN. [Concomitant]
     Active Substance: DIGOXIN
     Dosage: 125 UG, DAILY (1 DAILY)
  10. REVATIO [Suspect]
     Active Substance: SILDENAFIL CITRATE
     Indication: PULMONARY HYPERTENSION
     Dosage: 20 MG, 3X/DAY(AM-NOON-PM)
     Route: 048
  11. REVATIO [Suspect]
     Active Substance: SILDENAFIL CITRATE
     Indication: CARDIAC DISORDER
  12. LISINOPRIL. [Concomitant]
     Active Substance: LISINOPRIL
     Dosage: 10 MG, DAILY

REACTIONS (4)
  - Cardiac failure congestive [Fatal]
  - Renal failure [Not Recovered/Not Resolved]
  - Body height decreased [Not Recovered/Not Resolved]
  - Abasia [Not Recovered/Not Resolved]

NARRATIVE: CASE EVENT DATE: 201012
